FAERS Safety Report 7576524-5 (Version None)
Quarter: 2011Q2

REPORT INFORMATION
  Report Type: 
  Country: None (occurrence: None)
  Receive Date: 20110628
  Receipt Date: 20100116
  Transmission Date: 20111010
  Serious: Yes (Death, Hospitalization, Other)
  Sender: FDA-Public Use
  Company Number: US-BAYER-201011180NA

PATIENT
  Age: 69 Year
  Sex: Female
  Weight: 87 kg

DRUGS (9)
  1. TOPROL-XL [Concomitant]
     Dosage: 50 MG, ONCE
     Dates: start: 20070318
  2. LASIX [Concomitant]
     Dosage: 40 MG, ONCE
     Route: 048
     Dates: start: 20070318
  3. PROCARDIA [Concomitant]
     Indication: HYPERTENSION
     Dosage: 90 MG, BID
     Route: 048
  4. CELEXA [Concomitant]
     Dosage: 20 MG, UNK
     Route: 048
     Dates: start: 20070318
  5. ACETYLSALICYLIC ACID SRT [Concomitant]
     Dosage: 325 MG, UNK
     Route: 048
     Dates: start: 20070318
  6. PLAVIX [Concomitant]
     Dosage: 75 MG, ONCE
     Route: 048
     Dates: start: 20070318
  7. TRASYLOL [Suspect]
     Indication: CORONARY ARTERY BYPASS
     Dosage: UNK
     Route: 042
     Dates: start: 20070322
  8. ATIVAN [Concomitant]
     Indication: ANXIETY
     Dosage: 1 MG, UNK
     Route: 048
  9. DUONEB [Concomitant]
     Dosage: AS NEEDED
     Dates: start: 20070318

REACTIONS (15)
  - CEREBROVASCULAR ACCIDENT [None]
  - DEATH [None]
  - CARDIAC DISORDER [None]
  - MYOCARDIAL INFARCTION [None]
  - FEAR [None]
  - INJURY [None]
  - UNEVALUABLE EVENT [None]
  - ANXIETY [None]
  - ANHEDONIA [None]
  - ORGAN FAILURE [None]
  - RENAL IMPAIRMENT [None]
  - RENAL FAILURE [None]
  - DEPRESSION [None]
  - RENAL INJURY [None]
  - PAIN [None]
